FAERS Safety Report 6276603-9 (Version None)
Quarter: 2009Q3

REPORT INFORMATION
  Report Type: 
  Country: None (occurrence: None)
  Receive Date: 20090722
  Receipt Date: 20080610
  Transmission Date: 20100115
  Serious: No
  Sender: FDA-Public Use
  Company Number: US-BRISTOL-MYERS SQUIBB COMPANY-14222723

PATIENT
  Age: 76 Year
  Sex: Male

DRUGS (6)
  1. COUMADIN [Suspect]
     Indication: THROMBOSIS PROPHYLAXIS
     Dates: start: 20080201, end: 20080311
  2. THALOMID [Suspect]
     Indication: MULTIPLE MYELOMA
     Dosage: 100MG(50MG BID) FROM 17JAN08-UNKFEB08 REDUCED DOSE = 50MG QD FROM 01FEB08-ONGOING
     Route: 048
     Dates: start: 20080117
  3. CALTRATE + D [Concomitant]
  4. ZOMETA [Concomitant]
     Indication: BONE DISORDER
     Route: 042
     Dates: start: 20080109
  5. ZOMETA [Concomitant]
     Indication: OSTEOPOROSIS
     Route: 042
     Dates: start: 20080109
  6. DECADRON [Concomitant]
     Indication: MULTIPLE MYELOMA
     Dates: start: 20080117

REACTIONS (5)
  - DIZZINESS [None]
  - GASTROINTESTINAL HAEMORRHAGE [None]
  - HEARING IMPAIRED [None]
  - IRON DEFICIENCY ANAEMIA [None]
  - NEUROPATHY PERIPHERAL [None]
